FAERS Safety Report 14838110 (Version 1)
Quarter: 2018Q2

REPORT INFORMATION
  Report Type: Spontaneous
  Country: ES (occurrence: ES)
  Receive Date: 20180502
  Receipt Date: 20180502
  Transmission Date: 20180711
  Serious: Yes (Hospitalization)
  Sender: FDA-Public Use
  Company Number: ES-MYLANLABS-2018M1027383

PATIENT
  Age: 34 Year
  Sex: Female

DRUGS (5)
  1. LEVONORGESTREL. [Suspect]
     Active Substance: LEVONORGESTREL
     Indication: MENORRHAGIA
     Dosage: 52 MG, UNK, SINGLE
     Route: 015
  2. LEVONORGESTREL. [Suspect]
     Active Substance: LEVONORGESTREL
     Dosage: 52 MG, UNK,SINGLE
     Route: 015
  3. LEVONORGESTREL. [Suspect]
     Active Substance: LEVONORGESTREL
     Dosage: 52 MG, UNK, SINGLE
     Route: 015
  4. PRAVASTATIN. [Concomitant]
     Active Substance: PRAVASTATIN
     Indication: DYSLIPIDAEMIA
     Dosage: UNK
     Route: 065
  5. LEVOTHYROXINE. [Concomitant]
     Active Substance: LEVOTHYROXINE
     Indication: PRIMARY HYPOTHYROIDISM
     Dosage: UNK
     Route: 065

REACTIONS (3)
  - Anaemia [Recovered/Resolved]
  - Device expulsion [Unknown]
  - Menorrhagia [Recovered/Resolved]
